FAERS Safety Report 5696376-8 (Version None)
Quarter: 2008Q2

REPORT INFORMATION
  Report Type: 
  Country: None (occurrence: None)
  Receive Date: 20080408
  Receipt Date: 20080328
  Transmission Date: 20081010
  Serious: Yes (Other)
  Sender: FDA-Public Use
  Company Number: US-PFIZER INC-2008028381

PATIENT
  Sex: Female
  Weight: 56.2 kg

DRUGS (4)
  1. DILANTIN [Suspect]
     Indication: CONVULSION
  2. INDERAL [Concomitant]
  3. ASPIRIN [Concomitant]
  4. VALIUM [Concomitant]

REACTIONS (4)
  - BALANCE DISORDER [None]
  - DISCOMFORT [None]
  - EYE DISORDER [None]
  - INNER EAR DISORDER [None]
